FAERS Safety Report 19660302 (Version 2)
Quarter: 2021Q4

REPORT INFORMATION
  Report Type: Spontaneous
  Country: KR (occurrence: KR)
  Receive Date: 20210805
  Receipt Date: 20211004
  Transmission Date: 20220303
  Serious: Yes (Death, Hospitalization)
  Sender: FDA-Public Use
  Company Number: KR-GE HEALTHCARE LIFE SCIENCES-2021CSU003774

PATIENT

DRUGS (2)
  1. OMNIPAQUE [Suspect]
     Active Substance: IOHEXOL
     Indication: Computerised tomogram thorax
     Dosage: UNK UNK, SINGLE
     Route: 042
     Dates: start: 20210728, end: 20210728
  2. OMNIPAQUE [Suspect]
     Active Substance: IOHEXOL
     Indication: Product used for unknown indication

REACTIONS (2)
  - Dyspnoea [Fatal]
  - Pulse absent [Fatal]

NARRATIVE: CASE EVENT DATE: 20210728
